FAERS Safety Report 9350472 (Version 1)
Quarter: 2013Q2

REPORT INFORMATION
  Report Type: Spontaneous
  Country: US (occurrence: US)
  Receive Date: 20130617
  Receipt Date: 20130617
  Transmission Date: 20140414
  Serious: No
  Sender: FDA-Public Use
  Company Number: US-PFIZER INC-2013181173

PATIENT
  Age: 59 Year
  Sex: Female
  Weight: 113.38 kg

DRUGS (8)
  1. CHANTIX [Suspect]
     Indication: SMOKING CESSATION THERAPY
     Dosage: 0.5 MG, 1X/DAY
     Route: 048
     Dates: start: 2008
  2. AMITRIPTYLINE [Concomitant]
     Indication: ARTHRITIS
     Dosage: UNK
  3. ESCITALOPRAM [Concomitant]
     Dosage: 20 MG, 2X/DAY
  4. VENLAFAXINE [Concomitant]
     Dosage: 150 MG, 1X/DAY
  5. VALIUM [Concomitant]
     Dosage: UNK
  6. HYDROCHLOROTHIAZIDE [Concomitant]
     Dosage: UNK
  7. POTASSIUM [Concomitant]
     Dosage: 10 MEQ, UNK
  8. ATIVAN [Concomitant]
     Dosage: UNK

REACTIONS (1)
  - Stress [Unknown]
